FAERS Safety Report 20430700 (Version 7)
Quarter: 2023Q4

REPORT INFORMATION
  Report Type: Report from Study
  Country: FR (occurrence: FR)
  Receive Date: 20220204
  Receipt Date: 20231103
  Transmission Date: 20240109
  Serious: Yes (Death, Hospitalization)
  Sender: FDA-Public Use
  Company Number: FR-SERVIER-S21002224

PATIENT

DRUGS (7)
  1. PEGASPARGASE [Suspect]
     Active Substance: PEGASPARGASE
     Indication: Acute lymphocytic leukaemia
     Dosage: 3075 [IU], QD, D12, D26
     Route: 042
     Dates: start: 20210111, end: 20210129
  2. VINCRISTINE [Suspect]
     Active Substance: VINCRISTINE
     Indication: Acute lymphocytic leukaemia
     Dosage: 1.9 MG, D8, D15, D22, D29
     Route: 042
     Dates: start: 20210111, end: 20210201
  3. DAUNORUBICIN [Suspect]
     Active Substance: DAUNORUBICIN
     Indication: Acute lymphocytic leukaemia
     Dosage: 38 MG, D8, D15, D22, D29
     Route: 042
     Dates: start: 20210111, end: 20210129
  4. PREDNISOLONE [Suspect]
     Active Substance: PREDNISOLONE
     Indication: Acute lymphocytic leukaemia
     Dosage: 70 MG, D8 TO D28
     Route: 048
     Dates: start: 20210111, end: 20210131
  5. METHOTREXATE [Suspect]
     Active Substance: METHOTREXATE
     Indication: Acute lymphocytic leukaemia
     Dosage: 12 MG, D9, D13, D18, D24
     Route: 037
     Dates: start: 20210115
  6. CYTARABINE [Suspect]
     Active Substance: CYTARABINE
     Indication: Acute lymphocytic leukaemia
     Dosage: 30 MG, D9, D13, D18, D24
     Route: 037
     Dates: start: 20210115
  7. HYDROCORTISONE [Suspect]
     Active Substance: HYDROCORTISONE
     Indication: Acute lymphocytic leukaemia
     Dosage: 15 MG, D9, D13, D18, D24
     Route: 037
     Dates: start: 20210115

REACTIONS (13)
  - Dermo-hypodermitis [Fatal]
  - Aspergillus infection [Fatal]
  - Acute respiratory distress syndrome [Fatal]
  - Hepatic steatosis [Fatal]
  - Hypoventilation [Fatal]
  - Hepatomegaly [Fatal]
  - Meningorrhagia [Recovered/Resolved]
  - Haemophilus sepsis [Not Recovered/Not Resolved]
  - Staphylococcal sepsis [Not Recovered/Not Resolved]
  - Candida sepsis [Not Recovered/Not Resolved]
  - Fusobacterium infection [Not Recovered/Not Resolved]
  - Candida infection [Not Recovered/Not Resolved]
  - Colitis [Not Recovered/Not Resolved]

NARRATIVE: CASE EVENT DATE: 20210101
